FAERS Safety Report 18401215 (Version 1)
Quarter: 2020Q4

REPORT INFORMATION
  Report Type: Spontaneous
  Country: US (occurrence: US)
  Receive Date: 20201019
  Receipt Date: 20201019
  Transmission Date: 20210114
  Serious: No
  Sender: FDA-Public Use
  Company Number: US-ALKERMES INC.-ALK-2020-004603

PATIENT
  Age: 55 Year
  Sex: Male

DRUGS (3)
  1. VIVITROL [Suspect]
     Active Substance: NALTREXONE
     Dosage: 380 MILLIGRAM, QMO
     Route: 030
     Dates: start: 202006, end: 202006
  2. VIVITROL [Suspect]
     Active Substance: NALTREXONE
     Indication: ALCOHOL USE DISORDER
     Dosage: 380 MILLIGRAM, QMO
     Route: 030
     Dates: start: 202009
  3. NALTREXONE [Concomitant]
     Active Substance: NALTREXONE
     Indication: ALCOHOL USE DISORDER
     Dosage: UNK
     Route: 048

REACTIONS (3)
  - Alcohol poisoning [Not Recovered/Not Resolved]
  - Alcoholism [Not Recovered/Not Resolved]
  - Therapeutic response shortened [Not Recovered/Not Resolved]
